FAERS Safety Report 20642955 (Version 1)
Quarter: 2022Q1

REPORT INFORMATION
  Report Type: Spontaneous
  Country: GB (occurrence: GB)
  Receive Date: 20220328
  Receipt Date: 20220328
  Transmission Date: 20220423
  Serious: Yes (Hospitalization, Disabling, Other)
  Sender: FDA-Public Use
  Company Number: None

PATIENT
  Age: 44 Year
  Sex: Female
  Weight: 83 kg

DRUGS (7)
  1. AMLODIPINE [Suspect]
     Active Substance: AMLODIPINE BESYLATE
     Indication: Product used for unknown indication
  2. ASTRAZENECA COVID-19 VACCINE [Suspect]
     Active Substance: AZD-1222
     Indication: Product used for unknown indication
     Dosage: DOSE 3
     Dates: start: 20211218
  3. RAMIPRIL [Concomitant]
     Active Substance: RAMIPRIL
  4. ATORVASTATIN [Concomitant]
     Active Substance: ATORVASTATIN
  5. COVID-19 VACCINE [Concomitant]
     Indication: Immunisation
     Dates: start: 20210319
  6. INFLUENZA VIRUS VACCINE [Concomitant]
     Active Substance: INFLUENZA VIRUS VACCINE
     Indication: Immunisation
     Dates: start: 20211028
  7. INSULIN NOS [Concomitant]
     Active Substance: INSULIN NOS
     Indication: Type 1 diabetes mellitus

REACTIONS (8)
  - Diplopia [Recovered/Resolved]
  - Cranial nerve disorder [Recovered/Resolved]
  - Dehydration [Recovered/Resolved]
  - Headache [Recovered/Resolved]
  - Diarrhoea [Recovered/Resolved]
  - Nausea [Recovered/Resolved]
  - Cranial nerve injury [Not Recovered/Not Resolved]
  - Hypertension [Recovering/Resolving]

NARRATIVE: CASE EVENT DATE: 20220104
